FAERS Safety Report 20130712 (Version 3)
Quarter: 2021Q4

REPORT INFORMATION
  Report Type: Spontaneous
  Country: DE (occurrence: DE)
  Receive Date: 20211130
  Receipt Date: 20211202
  Transmission Date: 20220303
  Serious: Yes (Other)
  Sender: FDA-Public Use
  Company Number: DE-NOVARTISPH-NVSC2021DE234881

PATIENT
  Age: 72 Year
  Sex: Female
  Weight: 76 kg

DRUGS (7)
  1. ADALIMUMAB [Suspect]
     Active Substance: ADALIMUMAB
     Indication: Product used for unknown indication
     Dosage: UNK
     Route: 065
  2. TOFACITINIB [Suspect]
     Active Substance: TOFACITINIB
     Indication: Rheumatoid arthritis
     Dosage: 10 MG, QD (5 MILLIGRAM, BID (1-0-1))
     Route: 048
     Dates: start: 20180726, end: 20200419
  3. ACETAMINOPHEN\CODEINE PHOSPHATE [Concomitant]
     Active Substance: ACETAMINOPHEN\CODEINE PHOSPHATE
     Indication: Rheumatoid arthritis
     Dosage: UNK, PRN (AS NEEDED)
     Route: 048
  4. DICLOFENAC [Concomitant]
     Active Substance: DICLOFENAC
     Indication: Rheumatoid arthritis
     Dosage: 75 MG, PRN
     Route: 048
  5. PROLIA [Concomitant]
     Active Substance: DENOSUMAB
     Indication: Rheumatoid arthritis
     Dosage: 60 MG (EVERY 6 MONTHS)
     Route: 058
  6. PREDNISOLONE [Concomitant]
     Active Substance: PREDNISOLONE
     Indication: Rheumatoid arthritis
     Dosage: 10 MG
     Route: 048
     Dates: end: 202102
  7. VITAMIN D [Concomitant]
     Active Substance: VITAMIN D NOS
     Indication: Rheumatoid arthritis
     Dosage: 1000 IU
     Route: 048

REACTIONS (2)
  - Hepatotoxicity [Unknown]
  - Drug ineffective [Not Recovered/Not Resolved]

NARRATIVE: CASE EVENT DATE: 20200419
